FAERS Safety Report 10150475 (Version 1)
Quarter: 2014Q2

REPORT INFORMATION
  Report Type: Spontaneous
  Country: GB (occurrence: GB)
  Receive Date: 20140502
  Receipt Date: 20140502
  Transmission Date: 20141212
  Serious: Yes (Hospitalization)
  Sender: FDA-Public Use
  Company Number: GB-ELI_LILLY_AND_COMPANY-GB201404008451

PATIENT
  Age: 31 Year
  Sex: Male

DRUGS (5)
  1. FLUOXETINE [Suspect]
     Indication: SCHIZOPHRENIA, PARANOID TYPE
     Dosage: 40 MG, QD
     Route: 065
  2. FLUOXETINE [Suspect]
     Indication: PSYCHOTIC DISORDER
     Dosage: UNK
     Route: 065
  3. CLOZAPINE [Suspect]
     Indication: SCHIZOPHRENIA, PARANOID TYPE
     Dosage: UNK
     Route: 048
     Dates: end: 2009
  4. CLOZAPINE [Suspect]
     Indication: PSYCHOTIC DISORDER
     Dosage: 325 MG, QD
     Route: 048
  5. CLOZAPINE [Suspect]
     Dosage: 300 MG, QD
     Route: 048

REACTIONS (6)
  - Hallucination [Recovering/Resolving]
  - Paranoia [Recovering/Resolving]
  - Psychotic disorder [Recovering/Resolving]
  - Thinking abnormal [Recovering/Resolving]
  - Anxiety [Recovering/Resolving]
  - Sedation [Recovering/Resolving]
